FAERS Safety Report 4826058-3 (Version None)
Quarter: 2005Q4

REPORT INFORMATION
  Report Type: 
  Country: None (occurrence: None)
  Receive Date: 20051111
  Receipt Date: 20050812
  Transmission Date: 20060501
  Serious: Yes (Hospitalization, Disabling)
  Sender: FDA-Public Use
  Company Number: US-MERCK-0508USA02635

PATIENT
  Age: 63 Year
  Sex: Female
  Weight: 115 kg

DRUGS (8)
  1. VIOXX [Suspect]
     Indication: ARTHRALGIA
     Route: 048
     Dates: start: 19991001, end: 20001001
  2. VIOXX [Suspect]
     Route: 048
     Dates: end: 20041001
  3. VIOXX [Suspect]
     Route: 048
     Dates: start: 20001001
  4. VIOXX [Suspect]
     Indication: OSTEOARTHRITIS
     Route: 048
     Dates: start: 19991001, end: 20001001
  5. VIOXX [Suspect]
     Route: 048
     Dates: end: 20041001
  6. VIOXX [Suspect]
     Route: 048
     Dates: start: 20001001
  7. INSULIN, BIPHASIC ISOPHANE [INJECTION] [Concomitant]
     Route: 065
  8. ZOCOR [Suspect]
     Route: 048
     Dates: end: 20040101

REACTIONS (20)
  - ANGINA PECTORIS [None]
  - ANGIONEUROTIC OEDEMA [None]
  - CHEST PAIN [None]
  - CORONARY ARTERY DISEASE [None]
  - DIZZINESS [None]
  - DYSPNOEA [None]
  - EXTRADURAL HAEMATOMA [None]
  - EYE PAIN [None]
  - HYPERLIPIDAEMIA [None]
  - HYPERTENSION [None]
  - MUSCLE DISORDER [None]
  - MUSCLE SPASMS [None]
  - MUSCULOSKELETAL CHEST PAIN [None]
  - MYOCARDIAL INFARCTION [None]
  - OEDEMA PERIPHERAL [None]
  - PALPITATIONS [None]
  - PARAESTHESIA [None]
  - RHINITIS SEASONAL [None]
  - TRANSIENT ISCHAEMIC ATTACK [None]
  - URTICARIA [None]
